FAERS Safety Report 14632039 (Version 1)
Quarter: 2018Q1

REPORT INFORMATION
  Report Type: Report from Study
  Country: US (occurrence: US)
  Receive Date: 20180313
  Receipt Date: 20180313
  Transmission Date: 20180509
  Serious: Yes (Life-Threatening, Hospitalization, Other)
  Sender: FDA-Public Use
  Company Number: US-PFIZER INC-2018093778

PATIENT
  Age: 66 Year
  Sex: Male
  Weight: 84.1 kg

DRUGS (24)
  1. XANAX [Suspect]
     Active Substance: ALPRAZOLAM
     Indication: MENTAL DISORDER
     Dosage: 0.5 MG, AS REQUIRED
     Route: 048
     Dates: start: 201301, end: 201710
  2. BLINDED THERAPY [Suspect]
     Active Substance: INVESTIGATIONAL PRODUCT
     Indication: WEIGHT CONTROL
     Dosage: 2 IN 1 D
     Route: 048
     Dates: start: 20150220, end: 20150318
  3. BLINDED THERAPY [Suspect]
     Active Substance: INVESTIGATIONAL PRODUCT
     Dosage: 2 IN 1 D
     Route: 048
     Dates: start: 20150421, end: 20151013
  4. ALBUTEROL /00139501/ [Concomitant]
     Active Substance: ALBUTEROL
     Dosage: PRO AIR INHALER
  5. RAMIPRIL. [Concomitant]
     Active Substance: RAMIPRIL
     Dosage: UNK
  6. ESCITALOPRAM [Concomitant]
     Active Substance: ESCITALOPRAM OXALATE
     Dosage: UNK
  7. LAMOTRIGINE. [Concomitant]
     Active Substance: LAMOTRIGINE
     Dosage: UNK
  8. BLINDED THERAPY [Suspect]
     Active Substance: INVESTIGATIONAL PRODUCT
     Dosage: 2 IN 1 D
     Route: 048
     Dates: start: 20160517, end: 20170615
  9. SERETIDE [Concomitant]
     Active Substance: FLUTICASONE PROPIONATE\SALMETEROL XINAFOATE
     Dosage: ADVAIR DISKUS
  10. AMBIEN [Suspect]
     Active Substance: ZOLPIDEM TARTRATE
     Dosage: OVERDOSE (UNKNOWN DOSE)
     Route: 048
     Dates: start: 20171017, end: 201710
  11. CRESTOR [Concomitant]
     Active Substance: ROSUVASTATIN CALCIUM
     Dosage: UNK
  12. WELCHOL [Concomitant]
     Active Substance: COLESEVELAM HYDROCHLORIDE
     Dosage: UNK
  13. BUPROPION. [Concomitant]
     Active Substance: BUPROPION
     Dosage: UNK
  14. AMBIEN [Suspect]
     Active Substance: ZOLPIDEM TARTRATE
     Indication: MENTAL DISORDER
     Dosage: 10 MG, 1X/DAY (10MG, 1 IN 1)
     Route: 048
     Dates: start: 20171017, end: 201710
  15. ZETIA [Concomitant]
     Active Substance: EZETIMIBE
     Dosage: UNK
  16. B COMPLEX /02940301/ [Concomitant]
     Dosage: UNK
  17. VITAMIN D3 [Concomitant]
     Active Substance: CHOLECALCIFEROL
     Dosage: UNK
  18. AMBIEN [Suspect]
     Active Substance: ZOLPIDEM TARTRATE
     Dosage: 10 MG, 1X/DAY (10MG, 1 IN 1)
     Route: 048
     Dates: start: 201710
  19. PLAVIX [Concomitant]
     Active Substance: CLOPIDOGREL BISULFATE
     Dosage: UNK
  20. CANDESARTAN. [Concomitant]
     Active Substance: CANDESARTAN
     Dosage: UNK
  21. BRILINTA [Concomitant]
     Active Substance: TICAGRELOR
     Dosage: UNK
  22. XANAX [Suspect]
     Active Substance: ALPRAZOLAM
     Dosage: OVERDOSE (UNKNOWN DOSE) DURATION: 1 MONTH
     Route: 048
     Dates: start: 201710, end: 201710
  23. COENZYME Q10 [Concomitant]
     Active Substance: UBIDECARENONE
     Dosage: UNK
  24. XANAX [Suspect]
     Active Substance: ALPRAZOLAM
     Dosage: 0.5 MG, AS REQUIRED
     Route: 048
     Dates: start: 201710

REACTIONS (4)
  - Suicide attempt [Recovered/Resolved]
  - Colonic abscess [Recovered/Resolved]
  - Transient ischaemic attack [Recovered/Resolved]
  - Cerebrovascular accident [Recovered/Resolved]

NARRATIVE: CASE EVENT DATE: 20150315
